FAERS Safety Report 6668011-3 (Version None)
Quarter: 2010Q2

REPORT INFORMATION
  Report Type: 
  Country: None (occurrence: None)
  Receive Date: 20100405
  Receipt Date: 20100326
  Transmission Date: 20101027
  Serious: Yes (Hospitalization, Other)
  Sender: FDA-Public Use
  Company Number: CA-ABBOTT-10P-028-0632135-00

PATIENT
  Sex: Male

DRUGS (2)
  1. HUMIRA [Suspect]
     Indication: CROHN'S DISEASE
     Route: 058
     Dates: start: 20091231, end: 20100211
  2. HUMIRA [Suspect]
     Route: 058
     Dates: start: 20100201

REACTIONS (2)
  - COLONIC OBSTRUCTION [None]
  - FAECAL VOMITING [None]
